FAERS Safety Report 13506974 (Version 1)
Quarter: 2017Q2

REPORT INFORMATION
  Report Type: Report from Study
  Country: None (occurrence: DE)
  Receive Date: 20170503
  Receipt Date: 20170503
  Transmission Date: 20170830
  Serious: Yes (Other)
  Sender: FDA-Public Use
  Company Number: DE-ABBVIE-17K-062-1961399-00

PATIENT
  Age: 33 Year
  Sex: Female

DRUGS (1)
  1. HUMIRA [Suspect]
     Active Substance: ADALIMUMAB
     Indication: COLITIS ULCERATIVE
     Route: 058
     Dates: start: 20170106

REACTIONS (5)
  - Abortion induced [Unknown]
  - Colitis [Not Recovered/Not Resolved]
  - Exposure during pregnancy [Unknown]
  - Foetal death [Unknown]
  - Pseudopolyp [Not Recovered/Not Resolved]

NARRATIVE: CASE EVENT DATE: 201704
